FAERS Safety Report 8130082-5 (Version None)
Quarter: 2012Q1

REPORT INFORMATION
  Report Type: 
  Country: None (occurrence: None)
  Receive Date: 20120210
  Receipt Date: 20120206
  Transmission Date: 20120608
  Serious: Yes (Hospitalization, Congenital Anomaly, Other)
  Sender: FDA-Public Use
  Company Number: US-PFIZER INC-2011285843

PATIENT
  Sex: Male
  Weight: 4 kg

DRUGS (8)
  1. ZOLOFT [Suspect]
     Dosage: 150 MG, UNK
     Route: 064
     Dates: start: 20070901
  2. ZOLOFT [Suspect]
     Dosage: UNK
     Dates: start: 20070125
  3. MULTI-VITAMINS [Concomitant]
     Dosage: ONE TABLET, ONCE DAILY
     Route: 064
  4. ZOLOFT [Suspect]
     Indication: POSTPARTUM DEPRESSION
     Dosage: 50 MG, ONCE DAILY FOR ONE WEEK
     Route: 064
  5. ZOLOFT [Suspect]
     Dosage: 125 MG, UNK
     Route: 064
     Dates: start: 20070101
  6. ZOLOFT [Suspect]
     Dosage: 100 MG, UNK
     Route: 064
     Dates: start: 20070220
  7. TYLENOL W/ CODEINE [Concomitant]
     Indication: PAIN
     Dosage: 300 MG / 30 MG, AS NEEDED
     Route: 064
  8. VALACICLOVIR [Concomitant]
     Dosage: UNK
     Route: 064

REACTIONS (9)
  - PULMONARY HYPERTENSION [None]
  - MATERNAL EXPOSURE TIMING UNSPECIFIED [None]
  - ATRIAL SEPTAL DEFECT [None]
  - TRICUSPID VALVE INCOMPETENCE [None]
  - PULMONARY VALVE INCOMPETENCE [None]
  - PATENT DUCTUS ARTERIOSUS [None]
  - TRANSIENT TACHYPNOEA OF THE NEWBORN [None]
  - RIGHT VENTRICULAR HYPERTROPHY [None]
  - AORTIC VALVE DISEASE [None]
